FAERS Safety Report 6817503-2 (Version None)
Quarter: 2010Q3

REPORT INFORMATION
  Report Type: 
  Country: None (occurrence: None)
  Receive Date: 20100706
  Receipt Date: 20100628
  Transmission Date: 20110219
  Serious: Yes (Other)
  Sender: FDA-Public Use
  Company Number: B0661555A

PATIENT
  Age: 67 Year
  Sex: Female

DRUGS (4)
  1. ROPINIROLE [Suspect]
     Indication: PARKINSONISM
     Route: 065
  2. RASAGILINE MESILATE [Suspect]
     Indication: PARKINSONISM
     Route: 065
  3. L-DOPA [Suspect]
     Indication: PARKINSONISM
     Dosage: 125MG THREE TIMES PER DAY
     Route: 065
  4. BENSERAZIDE [Concomitant]

REACTIONS (12)
  - APATHY [None]
  - DECREASED INTEREST [None]
  - DEPRESSION [None]
  - DISTURBANCE IN ATTENTION [None]
  - FEELING OF DESPAIR [None]
  - FEELINGS OF WORTHLESSNESS [None]
  - HYPOKINESIA [None]
  - MOTOR DYSFUNCTION [None]
  - OEDEMA PERIPHERAL [None]
  - PARKINSON'S DISEASE [None]
  - SLEEP DISORDER [None]
  - SOCIAL AVOIDANT BEHAVIOUR [None]
